FAERS Safety Report 7255071 (Version 4)
Quarter: 2012Q4

REPORT INFORMATION
  Report Type: Report from Study
  Country: US (occurrence: US)
  Receive Date: 20100125
  Receipt Date: 20121004
  Transmission Date: 20130627
  Serious: Yes (Hospitalization)
  Sender: FDA-Public Use
  Company Number: US-ABBOTT-10P-163-0617841-00

PATIENT
  Age: 77 Year
  Sex: Female
  Weight: 64.92 kg

DRUGS (9)
  1. HUMIRA 40 MG/ 0.8 ML PRE-FILLED SYRINGE [Suspect]
     Indication: COLITIS ULCERATIVE
     Dates: end: 20100211
  2. COREG [Concomitant]
     Indication: CARDIAC FAILURE CONGESTIVE
  3. FUROSEMIDE [Concomitant]
     Indication: CARDIAC FAILURE CONGESTIVE
  4. POTASSIUM CHLORIDE [Concomitant]
     Indication: BLOOD POTASSIUM DECREASED
  5. NEXIUM [Concomitant]
     Indication: ULCER HAEMORRHAGE
  6. CALCIUM W/VITAMIN D NOS [Concomitant]
     Indication: PRODUCT USED FOR UNKNOWN INDICATION
  7. XANAX [Concomitant]
     Indication: ANXIETY
  8. LIALDA [Concomitant]
     Indication: COLITIS ULCERATIVE
     Dates: start: 2009
  9. FLUIDS [Concomitant]
     Indication: HYPERTENSION
     Route: 042
     Dates: start: 20100106

REACTIONS (2)
  - Colitis ulcerative [Recovered/Resolved]
  - Off label use [Unknown]
